FAERS Safety Report 9787239 (Version 1)
Quarter: 2013Q4

REPORT INFORMATION
  Report Type: Report from Study
  Country: US (occurrence: US)
  Receive Date: 20131229
  Receipt Date: 20131229
  Transmission Date: 20140711
  Serious: Yes (Other)
  Sender: FDA-Public Use
  Company Number: US-ROCHE-1324031

PATIENT
  Age: 16 Year
  Sex: Male
  Weight: 60 kg

DRUGS (7)
  1. NUTROPIN AQ [Suspect]
     Indication: HYPOPITUITARISM
     Dosage: Q HS
     Route: 058
  2. ZYRTEC [Concomitant]
     Route: 048
  3. VITAMIN D3 [Concomitant]
     Route: 048
  4. BENADRYL (UNITED STATES) [Concomitant]
     Dosage: PRN
     Route: 048
  5. CORTEF [Concomitant]
     Route: 048
  6. MELATONIN [Concomitant]
     Dosage: Q HS
     Route: 048
  7. SYNTHROID [Concomitant]

REACTIONS (8)
  - Fatigue [Unknown]
  - Cough [Unknown]
  - Vomiting [Unknown]
  - Hyperphagia [Unknown]
  - Frequent bowel movements [Unknown]
  - Nervousness [Unknown]
  - Hair growth abnormal [Unknown]
  - Decreased eye contact [Unknown]
